FAERS Safety Report 8898989 (Version 1)
Quarter: 2012Q4

REPORT INFORMATION
  Report Type: 
  Country: US (occurrence: US)
  Receive Date: 20121109
  Receipt Date: 20121109
  Transmission Date: 20130627
  Serious: Yes (Other)
  Sender: FDA-Public Use
  Company Number: US-ELI_LILLY_AND_COMPANY-US201210001396

PATIENT
  Sex: Male

DRUGS (3)
  1. EFFIENT [Suspect]
     Indication: STENT PLACEMENT
     Dosage: 10 mg, qd
     Route: 048
     Dates: start: 20120925, end: 20121025
  2. LIPITOR [Concomitant]
  3. LISINOPRIL [Concomitant]

REACTIONS (1)
  - Meningioma [Not Recovered/Not Resolved]
